FAERS Safety Report 20094578 (Version 2)
Quarter: 2021Q4

REPORT INFORMATION
  Report Type: Spontaneous
  Country: US (occurrence: None)
  Receive Date: 20211122
  Receipt Date: 20211122
  Transmission Date: 20220303
  Serious: No
  Sender: FDA-Public Use
  Company Number: US-Hikma Pharmaceuticals USA Inc.-US-H14001-21-03524

PATIENT
  Sex: Female

DRUGS (2)
  1. IPRATROPIUM BROMIDE [Suspect]
     Active Substance: IPRATROPIUM BROMIDE
     Indication: Hypersensitivity
     Dosage: ONE SPRAY IN EACH NOSTRIL
     Route: 045
  2. IPRATROPIUM BROMIDE [Suspect]
     Active Substance: IPRATROPIUM BROMIDE
     Indication: Nasal congestion

REACTIONS (1)
  - Product dose omission issue [Not Recovered/Not Resolved]
